FAERS Safety Report 4804830-3 (Version None)
Quarter: 2005Q4

REPORT INFORMATION
  Report Type: 
  Country: None (occurrence: None)
  Receive Date: 20051017
  Receipt Date: 20051003
  Transmission Date: 20060501
  Serious: Yes (Other)
  Sender: FDA-Public Use
  Company Number: SUS1-2005-00736

PATIENT
  Age: 9 Year
  Sex: Male
  Weight: 22.7 kg

DRUGS (1)
  1. ADDERALL XR 30 [Suspect]
     Dosage: SEE IMAGE

REACTIONS (1)
  - GROWTH RETARDATION [None]
